FAERS Safety Report 4766553-9 (Version None)
Quarter: 2005Q3

REPORT INFORMATION
  Report Type: 
  Country: None (occurrence: None)
  Receive Date: 20050909
  Receipt Date: 20050825
  Transmission Date: 20060218
  Serious: Yes (Other)
  Sender: FDA-Public Use
  Company Number: 2005124109

PATIENT
  Age: 60 Year
  Sex: Female

DRUGS (2)
  1. ATARAX [Suspect]
     Indication: ANAESTHETIC PREMEDICATION
  2. PENTAZOCINE LACTATE [Suspect]
     Indication: ANAESTHETIC PREMEDICATION

REACTIONS (1)
  - AMNESIA [None]
